FAERS Safety Report 5976977-X (Version None)
Quarter: 2008Q4

REPORT INFORMATION
  Report Type: 
  Country: None (occurrence: None)
  Receive Date: 20081203
  Receipt Date: 20080204
  Transmission Date: 20090506
  Serious: Yes (Other)
  Sender: FDA-Public Use
  Company Number: US-AMGEN-QUU262561

PATIENT
  Sex: Female

DRUGS (8)
  1. ENBREL [Suspect]
     Indication: RHEUMATOID ARTHRITIS
     Route: 058
     Dates: start: 20001201, end: 20080108
  2. METHOTREXATE [Suspect]
     Route: 048
  3. FOLIC ACID [Concomitant]
  4. ASPIRIN [Concomitant]
     Route: 048
     Dates: start: 20050620
  5. CALCIUM [Concomitant]
     Route: 048
     Dates: start: 20050620
  6. CELEBREX [Concomitant]
     Route: 048
     Dates: start: 20051018
  7. CHRONDROITAN + GLUCOSAMINE [Concomitant]
     Route: 048
     Dates: start: 20050620
  8. MULTI-VITAMINS [Concomitant]
     Route: 048
     Dates: start: 20050620

REACTIONS (1)
  - ALVEOLITIS ALLERGIC [None]
